FAERS Safety Report 21848225 (Version 1)
Quarter: 2023Q1

REPORT INFORMATION
  Report Type: Spontaneous
  Country: US (occurrence: None)
  Receive Date: 20230110
  Receipt Date: 20230110
  Transmission Date: 20230417
  Serious: Yes (Hospitalization)
  Sender: FDA-Public Use
  Company Number: None

PATIENT
  Sex: Female

DRUGS (1)
  1. ADBRY [Suspect]
     Active Substance: TRALOKINUMAB-LDRM
     Dosage: OTHER FREQUENCY : Q OTHER WEEK;?
     Route: 058
     Dates: start: 20221209

REACTIONS (3)
  - Blood disorder [None]
  - Infection [None]
  - Therapy cessation [None]
